FAERS Safety Report 5794158-X (Version None)
Quarter: 2008Q2

REPORT INFORMATION
  Report Type: 
  Country: None (occurrence: None)
  Receive Date: 20080627
  Receipt Date: 20080623
  Transmission Date: 20081010
  Serious: Yes (Other)
  Sender: FDA-Public Use
  Company Number: JP-MERCK-0806USA08412

PATIENT
  Age: 79 Year
  Sex: Male

DRUGS (4)
  1. SINGULAIR [Suspect]
     Indication: ASTHMA
     Route: 048
  2. [THERAPY UNSPECIFIED] [Suspect]
     Indication: INSOMNIA
     Route: 048
  3. PREDONINE [Concomitant]
     Route: 065
  4. [THERAPY UNSPECIFIED] [Concomitant]
     Indication: HYPERTENSION
     Route: 065

REACTIONS (2)
  - DEMENTIA [None]
  - SOMNAMBULISM [None]
